FAERS Safety Report 8496287 (Version 3)
Quarter: 2012Q4

REPORT INFORMATION
  Report Type: Report from Study
  Country: JP (occurrence: JP)
  Receive Date: 20120405
  Receipt Date: 20120904
  Transmission Date: 20130627
  Serious: Yes (Life-Threatening, Hospitalization, Disabling)
  Sender: FDA-Public Use
  Company Number: JP-EISAI INC-E7389-02259-CLI-JP

PATIENT
  Age: 33 Year
  Sex: Female
  Weight: 49 kg

DRUGS (9)
  1. HALAVEN [Suspect]
     Indication: BREAST CANCER RECURRENT
     Route: 041
     Dates: start: 20110912
  2. HALAVEN [Suspect]
     Indication: METASTASES TO BONE
  3. HALAVEN [Suspect]
     Indication: METASTASES TO LIVER
  4. ENDOXAN [Suspect]
     Route: 065
     Dates: end: 20110912
  5. PREDONINE [Concomitant]
     Route: 065
     Dates: start: 20111101, end: 20111108
  6. PARIET [Concomitant]
     Route: 065
     Dates: start: 20111101, end: 20111108
  7. METHYCOBAL [Concomitant]
     Route: 065
     Dates: start: 20111101, end: 20111108
  8. ADETPHOS [Concomitant]
     Route: 065
     Dates: start: 20111101, end: 20111108
  9. ZOMETA [Concomitant]
     Route: 065
     Dates: start: 2008, end: 20111114

REACTIONS (3)
  - Cystitis haemorrhagic [Recovered/Resolved with Sequelae]
  - Alopecia [None]
  - Shock haemorrhagic [None]
